FAERS Safety Report 5268201-0 (Version None)
Quarter: 2007Q1

REPORT INFORMATION
  Report Type: 
  Country: None (occurrence: None)
  Receive Date: 20070314
  Receipt Date: 20070314
  Transmission Date: 20070707
  Serious: Yes (Other)
  Sender: FDA-Public Use
  Company Number: None

PATIENT

DRUGS (1)
  1. DICHLORACETIC ACID 100% DELASCO/LOT # 73102E [Suspect]
     Indication: SEBACEOUS HYPERPLASIA
     Dosage: LESS THAN .OO1CC ONCE
     Dates: start: 20040110, end: 20070110

REACTIONS (1)
  - SCAR [None]
